FAERS Safety Report 20607334 (Version 4)
Quarter: 2022Q3

REPORT INFORMATION
  Report Type: Spontaneous
  Country: FR (occurrence: FR)
  Receive Date: 20220317
  Receipt Date: 20220715
  Transmission Date: 20221027
  Serious: Yes (Hospitalization, Other)
  Sender: FDA-Public Use
  Company Number: FR-ROCHE-3029773

PATIENT
  Age: 48 Year
  Sex: Male

DRUGS (17)
  1. BEVACIZUMAB [Suspect]
     Active Substance: BEVACIZUMAB
     Indication: Non-small cell lung cancer
     Dosage: 1125 MILLIGRAM, DAY 1 OF CYCLES OF21 DAYS
     Route: 042
     Dates: start: 20210819
  2. BEVACIZUMAB [Suspect]
     Active Substance: BEVACIZUMAB
     Dosage: 1035 MILLIGRAM, DAY 1 OF CYCLES OF21 DAYS
     Route: 042
     Dates: start: 20210930, end: 20210930
  3. BEVACIZUMAB [Suspect]
     Active Substance: BEVACIZUMAB
     Dosage: 1035 MILLIGRAM, DAY 1 OF CYCLES OF21 DAYS
     Route: 042
     Dates: start: 20211202
  4. BEVACIZUMAB [Suspect]
     Active Substance: BEVACIZUMAB
     Dosage: 885 MILLIGRAM (DAY 1 OF CYCLES OF21 DAYS)
     Route: 042
     Dates: start: 20220428
  5. ATEZOLIZUMAB [Suspect]
     Active Substance: ATEZOLIZUMAB
     Indication: Non-small cell lung cancer
     Dosage: 1200 MILLIGRAM, DAY 1 OF CYCLES OF21 DAYS
     Route: 041
     Dates: start: 20210819
  6. RAMIPRIL [Concomitant]
     Active Substance: RAMIPRIL
     Indication: Myocarditis
     Dosage: 7.5 MILLIGRAM, QD
     Route: 048
  7. PEMETREXED [Concomitant]
     Active Substance: PEMETREXED
     Indication: Non-small cell lung cancer
     Dosage: 935 MILLIGRAM
     Route: 042
     Dates: start: 20210819
  8. PEMETREXED [Concomitant]
     Active Substance: PEMETREXED
     Dosage: 425 MILLIGRAM
     Route: 042
     Dates: start: 20220428
  9. METHADONE [Concomitant]
     Active Substance: METHADONE HYDROCHLORIDE
     Dosage: 30 MILLIGRAM, QD
     Route: 048
  10. CARBOPLATIN [Concomitant]
     Active Substance: CARBOPLATIN
     Indication: Non-small cell lung cancer
     Dosage: 930 MILLIGRAM
     Route: 042
     Dates: start: 20210819
  11. CARBOPLATIN [Concomitant]
     Active Substance: CARBOPLATIN
     Dosage: 700 MILLIGRAM
     Route: 042
     Dates: start: 20211021
  12. MORPHINE SULFATE [Concomitant]
     Active Substance: MORPHINE SULFATE
     Indication: Pain
     Dosage: 20 MILLIGRAM, QD
  13. OXAZEPAM [Concomitant]
     Active Substance: OXAZEPAM
     Indication: Anxiety
     Dosage: 10 MILLIGRAM
     Route: 048
  14. INNOHEP [Concomitant]
     Active Substance: TINZAPARIN SODIUM
     Indication: Pulmonary embolism
     Route: 058
  15. BISOPROLOL [Concomitant]
     Active Substance: BISOPROLOL
     Indication: Myocarditis
     Dosage: 5 MILLIGRAM, QD
     Route: 048
  16. SKENAN [Concomitant]
     Active Substance: MORPHINE SULFATE
     Indication: Pain
     Dosage: 40 MILLIGRAM
     Route: 048
  17. ATORVASTATIN [Concomitant]
     Active Substance: ATORVASTATIN
     Indication: Dyslipidaemia
     Dosage: 40 MILLIGRAM, QD

REACTIONS (4)
  - Pain [Recovered/Resolved]
  - COVID-19 [Not Recovered/Not Resolved]
  - Hyperthyroidism [Recovered/Resolved]
  - Malignant neoplasm progression [Not Recovered/Not Resolved]

NARRATIVE: CASE EVENT DATE: 20211223
